FAERS Safety Report 4524924-X (Version None)
Quarter: 2004Q4

REPORT INFORMATION
  Report Type: 
  Country: None (occurrence: None)
  Receive Date: 20041117
  Receipt Date: 20030501
  Transmission Date: 20050328
  Serious: Yes (Other)
  Sender: FDA-Public Use
  Company Number: C2003-1135.01

PATIENT
  Age: 26 Year
  Sex: Male

DRUGS (7)
  1. CLOZAPINE [Suspect]
     Dosage: 100MG BID, ORAL
     Route: 048
     Dates: start: 20030325, end: 20030421
  2. CLOZAPINE [Suspect]
     Dosage: 100MG BID, ORAL
     Route: 048
     Dates: start: 20030423, end: 20030428
  3. TRILEPTAL [Suspect]
  4. CITALOPRAM [Concomitant]
  5. HALOPERIDOL [Concomitant]
  6. OXCARBAZEPINE [Concomitant]
  7. DIVALPROEX SODIUM [Concomitant]

REACTIONS (3)
  - DRUG INTERACTION [None]
  - NEUTROPHIL COUNT DECREASED [None]
  - WHITE BLOOD CELL COUNT DECREASED [None]
